FAERS Safety Report 16070972 (Version 1)
Quarter: 2019Q1

REPORT INFORMATION
  Report Type: Spontaneous
  Country: US (occurrence: US)
  Receive Date: 20190212
  Receipt Date: 20190212
  Transmission Date: 20190418
  Serious: Yes (Hospitalization)
  Sender: FDA-Public Use
  Company Number: None

PATIENT
  Age: 49 Year
  Sex: Male

DRUGS (21)
  1. CHLOROTHIAZIDE. [Concomitant]
     Active Substance: CHLOROTHIAZIDE
  2. EPIPEN [Concomitant]
     Active Substance: EPINEPHRINE
  3. COLCHICINE. [Concomitant]
     Active Substance: COLCHICINE
  4. VIT B-12 [Concomitant]
  5. ALLOPURINOL. [Concomitant]
     Active Substance: ALLOPURINOL
  6. ADEMPAS [Suspect]
     Active Substance: RIOCIGUAT
     Indication: PULMONARY HYPERTENSION
     Route: 048
     Dates: start: 201804
  7. SPIRONOLACTONE. [Concomitant]
     Active Substance: SPIRONOLACTONE
  8. NORCO [Concomitant]
     Active Substance: ACETAMINOPHEN\HYDROCODONE BITARTRATE
  9. RIVAROXABAN [Concomitant]
     Active Substance: RIVAROXABAN
  10. PANTOPROZOLE [Concomitant]
  11. MELATONIN [Concomitant]
     Active Substance: MELATONIN
  12. POTASSIUM CHLORIDE. [Concomitant]
     Active Substance: POTASSIUM CHLORIDE
  13. SIMVASTATIN. [Concomitant]
     Active Substance: SIMVASTATIN
  14. BUPROPION. [Concomitant]
     Active Substance: BUPROPION
  15. BUMETANIDE. [Concomitant]
     Active Substance: BUMETANIDE
  16. ALBUTEROL HFA [Concomitant]
     Active Substance: ALBUTEROL SULFATE
  17. CYCLOBENZAPRINE. [Concomitant]
     Active Substance: CYCLOBENZAPRINE
  18. MVI [Concomitant]
     Active Substance: VITAMINS
  19. CALCIUM [Concomitant]
     Active Substance: CALCIUM
  20. VITAMIN D3 [Concomitant]
     Active Substance: CHOLECALCIFEROL
  21. VITAMIN C [Concomitant]
     Active Substance: ASCORBIC ACID

REACTIONS (1)
  - Pulmonary hypertension [None]

NARRATIVE: CASE EVENT DATE: 20190211
